FAERS Safety Report 16946354 (Version 2)
Quarter: 2022Q4

REPORT INFORMATION
  Report Type: Report from Study
  Country: US (occurrence: US)
  Receive Date: 20191022
  Receipt Date: 20221130
  Transmission Date: 20230113
  Serious: Yes (Death, Life-Threatening, Other)
  Sender: FDA-Public Use
  Company Number: US-SHIRE-US201934936

PATIENT
  Sex: Female

DRUGS (8)
  1. PARATHYROID HORMONE [Suspect]
     Active Substance: PARATHYROID HORMONE
     Indication: Hypoparathyroidism
     Dosage: 75 MICROGRAM, 1/WEEK
     Route: 058
  2. PARATHYROID HORMONE [Suspect]
     Active Substance: PARATHYROID HORMONE
     Indication: Hypoparathyroidism
     Dosage: 75 MICROGRAM, 1/WEEK
     Route: 058
  3. PARATHYROID HORMONE [Suspect]
     Active Substance: PARATHYROID HORMONE
     Indication: Hypoparathyroidism
     Dosage: 75 MICROGRAM, 1/WEEK
     Route: 058
  4. CALCITRIOL [Concomitant]
     Active Substance: CALCITRIOL
     Indication: Hypoparathyroidism
     Dosage: UNK
     Route: 065
  5. CALCIUM CARBONATE [Concomitant]
     Active Substance: CALCIUM CARBONATE
     Indication: Hypoparathyroidism
     Dosage: UNK
     Route: 065
  6. HYDROCHLOROTHIAZIDE [Concomitant]
     Active Substance: HYDROCHLOROTHIAZIDE
     Indication: Hypoparathyroidism
     Dosage: UNK
     Route: 065
  7. FORTEO [Concomitant]
     Active Substance: TERIPARATIDE
     Indication: Hypocalcaemia
     Dosage: UNK
     Route: 065
  8. FORTEO [Concomitant]
     Active Substance: TERIPARATIDE
     Indication: Fracture

REACTIONS (3)
  - Death [Fatal]
  - Hypoparathyroidism [Unknown]
  - Recalled product [Unknown]
